FAERS Safety Report 4962292-X (Version None)
Quarter: 2006Q2

REPORT INFORMATION
  Report Type: 
  Country: None (occurrence: None)
  Receive Date: 20060404
  Receipt Date: 20050725
  Transmission Date: 20061013
  Serious: No
  Sender: FDA-Public Use
  Company Number: US-BRISTOL-MYERS SQUIBB COMPANY-13049515

PATIENT
  Age: 30 Year
  Sex: Male

DRUGS (8)
  1. DROXIA [Suspect]
  2. ZOLOFT [Concomitant]
  3. FOLIC ACID [Concomitant]
  4. PREVACID [Concomitant]
  5. PHENERGAN HCL [Concomitant]
  6. METHADONE HCL [Concomitant]
  7. OXYCODONE [Concomitant]
  8. LORATADINE [Concomitant]

REACTIONS (1)
  - DYSURIA [None]
